FAERS Safety Report 16908678 (Version 2)
Quarter: 2019Q4

REPORT INFORMATION
  Report Type: Report from Study
  Country: US (occurrence: US)
  Receive Date: 20191011
  Receipt Date: 20191018
  Transmission Date: 20200122
  Serious: Yes (Hospitalization, Other)
  Sender: FDA-Public Use
  Company Number: US-JNJFOC-20190919600

PATIENT
  Age: 3 Year
  Sex: Female

DRUGS (2)
  1. IMBRUVICA [Suspect]
     Active Substance: IBRUTINIB
     Indication: GRAFT VERSUS HOST DISEASE
     Dosage: 140 MG, QD
     Route: 048
     Dates: start: 20190826
  2. IMBRUVICA [Suspect]
     Active Substance: IBRUTINIB
     Indication: MALIGNANT NEOPLASM OF THORAX
     Route: 048
     Dates: start: 20190910

REACTIONS (15)
  - Off label use [Unknown]
  - Product use in unapproved indication [Unknown]
  - Diarrhoea [Unknown]
  - Seizure [Unknown]
  - Vomiting [Recovering/Resolving]
  - Contusion [Unknown]
  - Screaming [Unknown]
  - Product administered to patient of inappropriate age [Unknown]
  - Incorrect dose administered [Unknown]
  - Wrong technique in product usage process [Unknown]
  - Thrombocytopenia [Unknown]
  - Epistaxis [Unknown]
  - Aggression [Unknown]
  - Hospitalisation [Unknown]
  - Abdominal pain upper [Unknown]

NARRATIVE: CASE EVENT DATE: 20190826
